FAERS Safety Report 7875333-7 (Version None)
Quarter: 2011Q4

REPORT INFORMATION
  Report Type: 
  Country: None (occurrence: None)
  Receive Date: 20111031
  Receipt Date: 20111018
  Transmission Date: 20120403
  Serious: Yes (Death, Hospitalization)
  Sender: FDA-Public Use
  Company Number: US-GLAXOSMITHKLINE-A0790238A

PATIENT
  Age: 70 Year
  Sex: Male
  Weight: 104.5 kg

DRUGS (8)
  1. SIMVASTATIN [Concomitant]
  2. FUROSEMIDE [Concomitant]
  3. LOPRESSOR [Concomitant]
  4. ISORDIL [Concomitant]
  5. METOPROLOL [Concomitant]
  6. GLYBURIDE [Concomitant]
  7. AVANDIA [Suspect]
     Indication: TYPE 2 DIABETES MELLITUS
     Dosage: 4MG UNKNOWN
     Route: 048
     Dates: start: 20010101, end: 20061001
  8. LISINOPRIL [Concomitant]

REACTIONS (14)
  - CEREBRAL HAEMORRHAGE [None]
  - DEATH [None]
  - ATRIAL FIBRILLATION [None]
  - RENAL FAILURE [None]
  - CARDIAC FAILURE CONGESTIVE [None]
  - BUNDLE BRANCH BLOCK RIGHT [None]
  - MITRAL VALVE CALCIFICATION [None]
  - MYOCARDIAL INFARCTION [None]
  - CEREBROVASCULAR ACCIDENT [None]
  - FALL [None]
  - HEAD INJURY [None]
  - MITRAL VALVE INCOMPETENCE [None]
  - TRICUSPID VALVE INCOMPETENCE [None]
  - TRANSIENT ISCHAEMIC ATTACK [None]
